FAERS Safety Report 15575122 (Version 2)
Quarter: 2018Q4

REPORT INFORMATION
  Report Type: Report from Study
  Country: CA (occurrence: CA)
  Receive Date: 20181101
  Receipt Date: 20181116
  Transmission Date: 20190205
  Serious: Yes (Other)
  Sender: FDA-Public Use
  Company Number: CA-JNJFOC-20181041626

PATIENT
  Age: 79 Year
  Sex: Male
  Weight: 64.5 kg

DRUGS (1)
  1. STELARA [Suspect]
     Active Substance: USTEKINUMAB
     Indication: CROHN^S DISEASE
     Dosage: STRENGTH = 90 MG
     Route: 058
     Dates: start: 20180426

REACTIONS (5)
  - Contusion [Recovered/Resolved]
  - Bronchitis chronic [Recovered/Resolved]
  - Fall [Recovered/Resolved]
  - Back pain [Unknown]
  - Pseudomonas infection [Recovered/Resolved]

NARRATIVE: CASE EVENT DATE: 2018
